FAERS Safety Report 24808397 (Version 1)
Quarter: 2025Q1

REPORT INFORMATION
  Report Type: Spontaneous
  Country: CA (occurrence: CA)
  Receive Date: 20250106
  Receipt Date: 20250106
  Transmission Date: 20250408
  Serious: Yes (Hospitalization, Other)
  Sender: CELLTRION
  Company Number: CA-CELLTRION INC.-2025CA000030

PATIENT

DRUGS (2)
  1. RITUXIMAB [Suspect]
     Active Substance: RITUXIMAB
     Indication: Product used for unknown indication
  2. BENDAMUSTINE [Suspect]
     Active Substance: BENDAMUSTINE
     Indication: Product used for unknown indication

REACTIONS (5)
  - Dermatitis exfoliative generalised [Unknown]
  - Intensive care [Unknown]
  - Serum sickness-like reaction [Unknown]
  - Beta haemolytic streptococcal infection [Unknown]
  - Septic shock [Unknown]
